FAERS Safety Report 5464027-3 (Version None)
Quarter: 2007Q3

REPORT INFORMATION
  Report Type: 
  Country: None (occurrence: None)
  Receive Date: 20070919
  Receipt Date: 20070907
  Transmission Date: 20080115
  Serious: Yes (Other)
  Sender: FDA-Public Use
  Company Number: 2007328898

PATIENT
  Age: 60 Year
  Sex: Female
  Weight: 90.7194 kg

DRUGS (5)
  1. NEOSPORIN [Suspect]
     Indication: EXCORIATION
     Dosage: TWICE A DAY, TOPICAL
     Route: 061
     Dates: start: 20070725, end: 20070824
  2. PRILOSEC [Concomitant]
  3. TRIAMTERENE (TRIAMTERENE) [Concomitant]
  4. SIMVASTATIN [Concomitant]
  5. SYNTHROID [Concomitant]

REACTIONS (3)
  - BLISTER [None]
  - ERYTHEMA [None]
  - WOUND SECRETION [None]
